FAERS Safety Report 16673072 (Version 13)
Quarter: 2023Q2

REPORT INFORMATION
  Report Type: Report from Study
  Country: JP (occurrence: JP)
  Receive Date: 20190806
  Receipt Date: 20230501
  Transmission Date: 20230722
  Serious: Yes (Other)
  Sender: FDA-Public Use
  Company Number: JP-ABBVIE-18K-087-2330099-00

PATIENT
  Age: 64 Year
  Sex: Female

DRUGS (4)
  1. CARBIDOPA\LEVODOPA [Suspect]
     Active Substance: CARBIDOPA\LEVODOPA
     Indication: Parkinson^s disease
     Dosage: MD: 8 ML, CD: 1.8 ML/HR ? 16 HRS, ED: 0 ML/UNIT ? 0
     Route: 050
     Dates: start: 20190320
  2. CARBIDOPA\LEVODOPA [Suspect]
     Active Substance: CARBIDOPA\LEVODOPA
     Dosage: MD: 8 ML, CD: 1.8 ML/HR ? 16 HRS, ED: 0 ML/UNIT ? 0
     Route: 050
     Dates: start: 20181027, end: 20190318
  3. CARBIDOPA\LEVODOPA [Suspect]
     Active Substance: CARBIDOPA\LEVODOPA
     Route: 050
     Dates: start: 20180224, end: 20181017
  4. CARBIDOPA\LEVODOPA [Concomitant]
     Active Substance: CARBIDOPA\LEVODOPA
     Indication: Parkinson^s disease
     Dosage: CARBIDOPA HYDRATE AND LEVODOPA
     Dates: start: 20190227, end: 20190404

REACTIONS (5)
  - Rhabdomyolysis [Recovered/Resolved]
  - Fall [Recovered/Resolved]
  - Device occlusion [Unknown]
  - Abdominal distension [Unknown]
  - Stoma site infection [Unknown]

NARRATIVE: CASE EVENT DATE: 20190227
